FAERS Safety Report 5392097-X (Version None)
Quarter: 2007Q3

REPORT INFORMATION
  Report Type: 
  Country: None (occurrence: None)
  Receive Date: 20070720
  Receipt Date: 20070717
  Transmission Date: 20080115
  Serious: No
  Sender: FDA-Public Use
  Company Number: US-ASTRAZENECA-2007UW04784

PATIENT
  Age: 31 Year
  Sex: Female

DRUGS (2)
  1. SEROQUEL [Suspect]
     Dosage: SWITCHED TO DEPAKOTE
     Route: 048
  2. DEPAKOTE [Concomitant]

REACTIONS (1)
  - DRUG INEFFECTIVE [None]
